FAERS Safety Report 12348218 (Version 3)
Quarter: 2020Q1

REPORT INFORMATION
  Report Type: Report from Study
  Country: CO (occurrence: CO)
  Receive Date: 20160509
  Receipt Date: 20200114
  Transmission Date: 20200409
  Serious: Yes (Death, Other)
  Sender: FDA-Public Use
  Company Number: CO-JNJFOC-20160506351

PATIENT
  Age: 86 Year
  Sex: Male
  Weight: 63 kg

DRUGS (2)
  1. PREDNISOLONE. [Concomitant]
     Active Substance: PREDNISOLONE
     Indication: PROSTATE CANCER
     Route: 048
     Dates: start: 20150525, end: 20160827
  2. ZYTIGA [Suspect]
     Active Substance: ABIRATERONE ACETATE
     Indication: PROSTATE CANCER METASTATIC
     Route: 048
     Dates: start: 20150525, end: 20160827

REACTIONS (13)
  - Aphasia [Unknown]
  - Drug ineffective [Unknown]
  - Wound [Unknown]
  - Feeling abnormal [Unknown]
  - Pain in extremity [Unknown]
  - Immobile [Not Recovered/Not Resolved]
  - Vomiting [Unknown]
  - Death [Fatal]
  - Cementoplasty [Recovered/Resolved with Sequelae]
  - Prostatic specific antigen increased [Unknown]
  - Nausea [Unknown]
  - Amnesia [Unknown]
  - Eating disorder [Unknown]

NARRATIVE: CASE EVENT DATE: 20151116
